FAERS Safety Report 6905750-0 (Version None)
Quarter: 2010Q3

REPORT INFORMATION
  Report Type: 
  Country: None (occurrence: None)
  Receive Date: 20100804
  Receipt Date: 20100729
  Transmission Date: 20110219
  Serious: Yes (Death, Hospitalization, Other)
  Sender: FDA-Public Use
  Company Number: ES-CELGENEUS-144-50794-10062189

PATIENT
  Age: 78 Year
  Sex: Male

DRUGS (20)
  1. VIDAZA [Suspect]
     Indication: MYELODYSPLASTIC SYNDROME
     Route: 065
     Dates: start: 20080602, end: 20090805
  2. VIDAZA [Suspect]
     Route: 065
     Dates: start: 20080703
  3. VIDAZA [Suspect]
     Route: 065
     Dates: start: 20080728
  4. VIDAZA [Suspect]
     Route: 065
     Dates: start: 20080825
  5. VIDAZA [Suspect]
     Route: 065
     Dates: start: 20080922
  6. VIDAZA [Suspect]
     Route: 065
     Dates: start: 20090413
  7. VIDAZA [Suspect]
     Route: 065
     Dates: start: 20090413
  8. NEUPOGEN [Concomitant]
     Indication: PRODUCT USED FOR UNKNOWN INDICATION
     Route: 065
     Dates: start: 20080602, end: 20090805
  9. RABEPRAZOLE SODIUM [Concomitant]
     Indication: GASTRIC ULCER
     Route: 065
  10. BENAZEPRIL [Concomitant]
     Indication: HYPERTENSION
     Route: 065
  11. ATORVASTATIN [Concomitant]
     Route: 065
  12. FUROSEMIDE [Concomitant]
     Route: 065
  13. EPLERENONE [Concomitant]
     Route: 065
  14. ALPRAZOLAM [Concomitant]
     Indication: INSOMNIA
     Route: 065
  15. FINASTERIDE [Concomitant]
     Route: 065
  16. TERAZOSIN HCL [Concomitant]
     Route: 065
  17. NITRGLYCERIN TRANSDERMAL SYSTEM [Concomitant]
     Route: 065
  18. DARBEPOETIN ALFA [Concomitant]
     Indication: PRODUCT USED FOR UNKNOWN INDICATION
     Route: 065
     Dates: start: 20090805, end: 20090907
  19. NEUPOGEN [Concomitant]
     Indication: PRODUCT USED FOR UNKNOWN INDICATION
     Route: 065
  20. ARANESP [Concomitant]
     Indication: PRODUCT USED FOR UNKNOWN INDICATION
     Route: 065
     Dates: start: 20090805

REACTIONS (15)
  - ACUTE MYELOID LEUKAEMIA [None]
  - CARDIAC FAILURE [None]
  - EPISTAXIS [None]
  - EXTRADURAL HAEMATOMA [None]
  - GASTROINTESTINAL HAEMORRHAGE [None]
  - GENERAL PHYSICAL HEALTH DETERIORATION [None]
  - GINGIVAL BLEEDING [None]
  - HEAD INJURY [None]
  - INJECTION SITE HAEMORRHAGE [None]
  - MYELODYSPLASTIC SYNDROME TRANSFORMATION [None]
  - MYOCARDIAL INFARCTION [None]
  - NO THERAPEUTIC RESPONSE [None]
  - PYREXIA [None]
  - SUICIDAL IDEATION [None]
  - URINARY TRACT INFECTION [None]
